FAERS Safety Report 9796186 (Version 2)
Quarter: 2014Q1

REPORT INFORMATION
  Report Type: Spontaneous
  Country: US (occurrence: US)
  Receive Date: 20140103
  Receipt Date: 20140107
  Transmission Date: 20141002
  Serious: Yes (Other)
  Sender: FDA-Public Use
  Company Number: US-PFIZER INC-2014000359

PATIENT
  Age: 49 Year
  Sex: Female
  Weight: 72.56 kg

DRUGS (6)
  1. LYRICA [Suspect]
     Indication: FIBROMYALGIA
     Dosage: 75 MG, 3X/DAY
     Dates: end: 201312
  2. LYRICA [Interacting]
     Indication: NEURALGIA
     Dosage: 75 MG, 3X/DAY
  3. LYRICA [Interacting]
     Dosage: 75 MG, 3X/DAY
  4. CHANTIX [Interacting]
     Indication: SMOKING CESSATION THERAPY
     Dosage: 0.5 MG, 1X/DAY
     Dates: start: 20131221, end: 20131225
  5. CHANTIX [Interacting]
     Dosage: UNK
     Dates: start: 20131221, end: 201312
  6. CLONIDINE [Concomitant]
     Indication: BLOOD PRESSURE ABNORMAL
     Dosage: 0.2 MG, 1X/DAY

REACTIONS (8)
  - Drug interaction [Recovered/Resolved]
  - Renal failure acute [Unknown]
  - Anuria [Recovered/Resolved]
  - Dehydration [Recovered/Resolved]
  - Toxicity to various agents [Unknown]
  - Feeling abnormal [Unknown]
  - Pain [Unknown]
  - Muscle spasms [Unknown]
